FAERS Safety Report 8474789-9 (Version None)
Quarter: 2012Q2

REPORT INFORMATION
  Report Type: 
  Country: None (occurrence: None)
  Receive Date: 20120622
  Receipt Date: 20120615
  Transmission Date: 20120825
  Serious: Yes (Hospitalization, Disabling)
  Sender: FDA-Public Use
  Company Number: 2011SP051912

PATIENT
  Age: 39 Year
  Sex: Female
  Weight: 70.3075 kg

DRUGS (5)
  1. NUVARING [Suspect]
     Indication: CONTRACEPTION
     Dates: start: 20101104, end: 20101204
  2. CALCIUM [Concomitant]
  3. MULTI-VITAMIN [Concomitant]
  4. CYTOMEL [Concomitant]
  5. FOLIC ACID [Concomitant]

REACTIONS (22)
  - DRUG ABUSE [None]
  - PARANOIA [None]
  - DRUG SCREEN POSITIVE [None]
  - VENTRICULAR HYPERTROPHY [None]
  - MITRAL VALVE INCOMPETENCE [None]
  - COMA [None]
  - SINUS BRADYCARDIA [None]
  - MITRAL VALVE PROLAPSE [None]
  - CEREBRAL VENOUS THROMBOSIS [None]
  - INSOMNIA [None]
  - DEPRESSION [None]
  - HERPES VIRUS INFECTION [None]
  - MENTAL DISORDER [None]
  - BRAIN OEDEMA [None]
  - VISION BLURRED [None]
  - STRESS [None]
  - LOSS OF EMPLOYMENT [None]
  - CARDIAC MURMUR [None]
  - EXTENSOR PLANTAR RESPONSE [None]
  - CEREBROVASCULAR ACCIDENT [None]
  - MENTAL STATUS CHANGES [None]
  - SLEEP APNOEA SYNDROME [None]
